FAERS Safety Report 10879950 (Version 2)
Quarter: 2015Q1

REPORT INFORMATION
  Report Type: Report from Study
  Country: US (occurrence: US)
  Receive Date: 20150302
  Receipt Date: 20150313
  Transmission Date: 20150721
  Serious: Yes (Hospitalization)
  Sender: FDA-Public Use
  Company Number: US-MERCK-1502USA012074

PATIENT
  Age: 62 Year
  Sex: Male
  Weight: 52 kg

DRUGS (12)
  1. CARBOPLATIN. [Suspect]
     Active Substance: CARBOPLATIN
     Indication: NON-SMALL CELL LUNG CANCER
     Dosage: 6 MG/ML/MIN, Q3W
     Route: 042
     Dates: start: 20150206, end: 20150206
  2. PRED FORTE [Concomitant]
     Active Substance: PREDNISOLONE ACETATE
     Indication: EYE INFLAMMATION
     Dosage: 1 DROP, QD
     Route: 047
     Dates: start: 201501
  3. BEVACIZUMAB [Suspect]
     Active Substance: BEVACIZUMAB
     Indication: NON-SMALL CELL LUNG CANCER
     Dosage: 15 MG/KG, Q3W
     Route: 042
     Dates: start: 20150206, end: 20150206
  4. PROTONIX [Concomitant]
     Active Substance: PANTOPRAZOLE SODIUM
     Indication: GASTROOESOPHAGEAL REFLUX DISEASE
     Dosage: 40 MG, QD
     Route: 048
     Dates: start: 201501
  5. REMERON [Concomitant]
     Active Substance: MIRTAZAPINE
     Indication: INSOMNIA
     Dosage: 15 MG, QD
     Route: 048
     Dates: start: 201501
  6. DEXAMETHASONE. [Concomitant]
     Active Substance: DEXAMETHASONE
     Indication: POST PROCEDURAL OEDEMA
     Dosage: 8 MG, BID
     Route: 048
     Dates: start: 20150207
  7. PACLITAXEL. [Suspect]
     Active Substance: PACLITAXEL
     Indication: NON-SMALL CELL LUNG CANCER
     Dosage: 200 MG/M2, Q3W
     Route: 042
     Dates: start: 20150206, end: 20150206
  8. FENTANYL. [Concomitant]
     Active Substance: FENTANYL
     Indication: BACK PAIN
     Dosage: TOTAL DAILLY DOSE 25MG, FREQUENCY: OTHER; FORMULATION: PATCH
     Route: 058
     Dates: start: 201401, end: 20150206
  9. DEXAMETHASONE. [Concomitant]
     Active Substance: DEXAMETHASONE
     Indication: INFLAMMATION
     Dosage: 4 MG, QID
     Route: 048
     Dates: start: 20141204, end: 20150206
  10. NORCO [Concomitant]
     Active Substance: ACETAMINOPHEN\HYDROCODONE BITARTRATE
     Indication: BACK PAIN
     Dosage: DAILY DOSE 6 TABLET, PRN
     Route: 048
     Dates: start: 201501
  11. ONDANSETRON [Concomitant]
     Active Substance: ONDANSETRON
     Indication: PROPHYLAXIS OF NAUSEA AND VOMITING
     Dosage: 8 MG, BID
     Route: 048
     Dates: start: 20150207, end: 20150210
  12. PEMBROLIZUMAB. [Suspect]
     Active Substance: PEMBROLIZUMAB
     Indication: NON-SMALL CELL LUNG CANCER
     Dosage: 10 MG/KG, Q3W
     Route: 042
     Dates: start: 20150206, end: 20150206

REACTIONS (1)
  - Bronchopneumonia [Not Recovered/Not Resolved]

NARRATIVE: CASE EVENT DATE: 20150216
